FAERS Safety Report 6853069-9 (Version None)
Quarter: 2010Q3

REPORT INFORMATION
  Report Type: 
  Country: None (occurrence: None)
  Receive Date: 20100717
  Receipt Date: 20071129
  Transmission Date: 20110219
  Serious: No
  Sender: FDA-Public Use
  Company Number: US-PFIZER INC-2007101135

PATIENT
  Sex: Female
  Weight: 105.45 kg

DRUGS (18)
  1. CHANTIX [Suspect]
     Indication: SMOKING CESSATION THERAPY
     Dates: start: 20071128
  2. PROVENTIL GENTLEHALER [Suspect]
     Indication: BRONCHITIS
     Dosage: 2 PUFFS
     Dates: start: 20071128
  3. XANAX [Concomitant]
  4. PREMARIN [Concomitant]
  5. DIAMOX SRC [Concomitant]
  6. CELEXA [Concomitant]
  7. ALL OTHER THERAPEUTIC PRODUCTS [Concomitant]
  8. ASPIRINE [Concomitant]
  9. OXYCODONE HCL [Concomitant]
  10. SOMA [Concomitant]
  11. MULTI-VITAMINS [Concomitant]
  12. FISH OIL [Concomitant]
  13. VITAMIN B COMPLEX CAP [Concomitant]
  14. PROMETHAZINE [Concomitant]
  15. AMBIEN [Concomitant]
  16. ZOLPIDEM TARTRATE [Concomitant]
  17. MECLIZINE [Concomitant]
  18. SIMVASTATIN [Concomitant]

REACTIONS (2)
  - BRONCHITIS [None]
  - HEADACHE [None]
